FAERS Safety Report 11725938 (Version 1)
Quarter: 2015Q4

REPORT INFORMATION
  Report Type: Report from Study
  Country: US (occurrence: US)
  Receive Date: 20151112
  Receipt Date: 20151112
  Transmission Date: 20160304
  Serious: Yes (Hospitalization, Other)
  Sender: FDA-Public Use
  Company Number: US-ROCHE-1658890

PATIENT
  Sex: Male

DRUGS (15)
  1. ESBRIET [Suspect]
     Active Substance: PIRFENIDONE
     Indication: IDIOPATHIC PULMONARY FIBROSIS
     Route: 065
     Dates: start: 201507, end: 20150814
  2. LISINOPRIL. [Concomitant]
     Active Substance: LISINOPRIL
  3. TOPROL XL [Concomitant]
     Active Substance: METOPROLOL SUCCINATE
  4. MOBIC [Concomitant]
     Active Substance: MELOXICAM
  5. CYPROHEPTADINE. [Concomitant]
     Active Substance: CYPROHEPTADINE
     Indication: INCREASED APPETITE
  6. ASPIRIN. [Concomitant]
     Active Substance: ASPIRIN
  7. CHLOR-TRIMETON [Concomitant]
     Active Substance: CHLORPHENIRAMINE MALEATE
  8. FISH OIL [Concomitant]
     Active Substance: FISH OIL
  9. ZYRTEC [Concomitant]
     Active Substance: CETIRIZINE HYDROCHLORIDE
  10. AZELASTINE [Concomitant]
     Active Substance: AZELASTINE
     Dosage: NASAL SPRAY
     Route: 045
  11. ALEVE [Concomitant]
     Active Substance: NAPROXEN SODIUM
  12. RHINOCORT AQUA [Concomitant]
     Active Substance: BUDESONIDE
     Indication: HYPERSENSITIVITY
  13. VYTORIN [Concomitant]
     Active Substance: EZETIMIBE\SIMVASTATIN
  14. PROTONIX (UNITED STATES) [Concomitant]
  15. VITAMIN D3 [Concomitant]
     Active Substance: CHOLECALCIFEROL

REACTIONS (7)
  - Nausea [Unknown]
  - Loss of consciousness [Recovered/Resolved]
  - Hypophagia [Unknown]
  - Blood sodium decreased [Unknown]
  - Weight decreased [Not Recovered/Not Resolved]
  - Drug dose omission [Unknown]
  - Diarrhoea [Unknown]
